FAERS Safety Report 12071870 (Version 1)
Quarter: 2016Q1

REPORT INFORMATION
  Report Type: Spontaneous
  Country: US (occurrence: US)
  Receive Date: 20160212
  Receipt Date: 20160212
  Transmission Date: 20160526
  Serious: No
  Sender: FDA-Public Use
  Company Number: US-ASTRAZENECA-2016SE14468

PATIENT
  Age: 86 Year
  Sex: Female
  Weight: 51 kg

DRUGS (3)
  1. NEXIUM 24HR [Suspect]
     Active Substance: ESOMEPRAZOLE MAGNESIUM
     Dosage: UNK
     Route: 048
  2. LEXAPRO [Concomitant]
     Active Substance: ESCITALOPRAM OXALATE
     Dosage: 5 MG, 1X/DAY
     Route: 048
  3. KLONOPIN [Concomitant]
     Active Substance: CLONAZEPAM
     Dosage: CUTS 5MG TABLET IN HALF, THEN CUTS HALVES IN HALF

REACTIONS (2)
  - Crying [Unknown]
  - Nightmare [Unknown]

NARRATIVE: CASE EVENT DATE: 20160104
